FAERS Safety Report 5415916-7 (Version None)
Quarter: 2007Q3

REPORT INFORMATION
  Report Type: 
  Country: None (occurrence: None)
  Receive Date: 20070815
  Receipt Date: 20070803
  Transmission Date: 20080115
  Serious: Yes (Other)
  Sender: FDA-Public Use
  Company Number: CH-ELI_LILLY_AND_COMPANY-CH200708000609

PATIENT
  Age: 36 Year
  Sex: Female
  Weight: 60 kg

DRUGS (3)
  1. FLUCTINE [Suspect]
     Indication: DEPRESSION
     Dosage: 20 MG, DAILY (1/D)
     Route: 048
     Dates: start: 20070201, end: 20070101
  2. FLUCTINE [Suspect]
     Dosage: 40 MG, DAILY (1/D)
     Route: 048
     Dates: start: 20070101, end: 20070401
  3. DESLORATADINE [Concomitant]
     Indication: RHINITIS ALLERGIC
     Dosage: UNK UNK, AS NEEDED
     Route: 065
     Dates: start: 20070101

REACTIONS (2)
  - BULIMIA NERVOSA [None]
  - WEIGHT INCREASED [None]
